FAERS Safety Report 17196385 (Version 1)
Quarter: 2019Q4

REPORT INFORMATION
  Report Type: Spontaneous
  Country: US (occurrence: US)
  Receive Date: 20191203
  Receipt Date: 20191203
  Transmission Date: 20200122
  Serious: Yes (Life-Threatening)
  Sender: FDA-Public Use
  Company Number: None

PATIENT
  Age: 61 Year
  Sex: Female

DRUGS (23)
  1. ARIPIPRAZOLE. [Concomitant]
     Active Substance: ARIPIPRAZOLE
  2. METFORMIN [Concomitant]
     Active Substance: METFORMIN HYDROCHLORIDE
  3. OLMESA MEDOX [Concomitant]
  4. ONDASETRON [Concomitant]
     Active Substance: ONDANSETRON
  5. TRAMADOL. [Concomitant]
     Active Substance: TRAMADOL
  6. BUT/APAPA/CAF [Concomitant]
  7. DULOXETINE. [Concomitant]
     Active Substance: DULOXETINE
  8. ROSUVASATIN [Concomitant]
  9. ENBREL [Suspect]
     Active Substance: ETANERCEPT
     Indication: PSORIATIC ARTHROPATHY
     Route: 058
     Dates: start: 20190619
  10. CARVEDOLOL [Concomitant]
  11. LISINOPRIL/HCTZ [Concomitant]
     Active Substance: HYDROCHLOROTHIAZIDE\LISINOPRIL
  12. VALACYCLOVIR [Concomitant]
     Active Substance: VALACYCLOVIR HYDROCHLORIDE
  13. SERTRALINE [Concomitant]
     Active Substance: SERTRALINE HYDROCHLORIDE
  14. VIT D [Concomitant]
     Active Substance: VITAMIN D NOS
  15. CLONIDINE. [Concomitant]
     Active Substance: CLONIDINE
  16. HYDROZ [Concomitant]
  17. SUBOXONE [Concomitant]
     Active Substance: BUPRENORPHINE HYDROCHLORIDE\NALOXONE HYDROCHLORIDE
  18. SSYNTHROID [Concomitant]
  19. BUPROION [Concomitant]
  20. ESTRADIOL. [Concomitant]
     Active Substance: ESTRADIOL
  21. FENOFIBRATE. [Concomitant]
     Active Substance: FENOFIBRATE
  22. LISINOPRIL. [Concomitant]
     Active Substance: LISINOPRIL
  23. LUCEMYA [Concomitant]

REACTIONS (2)
  - Headache [None]
  - Aneurysm [None]

NARRATIVE: CASE EVENT DATE: 20191107
